FAERS Safety Report 6035403-5 (Version None)
Quarter: 2009Q1

REPORT INFORMATION
  Report Type: 
  Country: None (occurrence: None)
  Receive Date: 20090113
  Receipt Date: 20090108
  Transmission Date: 20090719
  Serious: Yes (Death)
  Sender: FDA-Public Use
  Company Number: US-JNJFOC-20090101775

PATIENT
  Sex: Female
  Weight: 97.52 kg

DRUGS (1)
  1. PROPULSID [Suspect]
     Indication: DYSPEPSIA
     Route: 065

REACTIONS (1)
  - CARDIAC DISORDER [None]
